FAERS Safety Report 7081188-3 (Version None)
Quarter: 2010Q4

REPORT INFORMATION
  Report Type: 
  Country: None (occurrence: None)
  Receive Date: 20101103
  Receipt Date: 20101026
  Transmission Date: 20110411
  Serious: Yes (Life-Threatening, Hospitalization)
  Sender: FDA-Public Use
  Company Number: FR-BAYER-201043478GPV

PATIENT
  Age: 75 Year
  Sex: Female

DRUGS (11)
  1. CIFLOX [Suspect]
     Indication: PYELONEPHRITIS
     Dosage: TOTAL DAILY DOSE: 1000 MG  UNIT DOSE: 500 MG
     Route: 048
     Dates: start: 20100910, end: 20100915
  2. XENETIX [Concomitant]
     Dosage: 350 MG IOD/ML
     Route: 042
     Dates: start: 20100909, end: 20100909
  3. BISOPROLOL ACID FUMARATE [Concomitant]
     Dosage: TOTAL DAILY DOSE: 5 MG  UNIT DOSE: 5 MG
     Route: 048
     Dates: end: 20100915
  4. LEVOTHYROXINE SODIUM [Concomitant]
     Dosage: TOTAL DAILY DOSE: 125 ?G  UNIT DOSE: 125 ?G
     Route: 048
  5. LOXEN [Concomitant]
     Indication: HYPERTENSION
     Dosage: TOTAL DAILY DOSE: 100 MG  UNIT DOSE: 50 MG
     Route: 048
     Dates: end: 20100915
  6. KESTIN [Concomitant]
     Route: 048
     Dates: start: 20100914, end: 20100915
  7. PREVISCAN [Concomitant]
     Dosage: TOTAL DAILY DOSE: 20 MG  UNIT DOSE: 20 MG
     Route: 048
     Dates: end: 20100915
  8. PREVISCAN [Concomitant]
     Dosage: TOTAL DAILY DOSE: 15 MG  UNIT DOSE: 20 MG
     Route: 048
     Dates: end: 20100915
  9. CORTANCYL [Concomitant]
     Dosage: TOTAL DAILY DOSE: 5 MG  UNIT DOSE: 5 MG
     Route: 048
  10. LYRICA [Concomitant]
     Dosage: TOTAL DAILY DOSE: 300 MG  UNIT DOSE: 150 MG
     Dates: end: 20100915
  11. INIPOMP [Concomitant]
     Dosage: TOTAL DAILY DOSE: 40 MG  UNIT DOSE: 40 MG
     Route: 048

REACTIONS (3)
  - ANURIA [None]
  - HYPERKALAEMIA [None]
  - RENAL FAILURE ACUTE [None]
